FAERS Safety Report 8908325 (Version 1)
Quarter: 2012Q4

REPORT INFORMATION
  Report Type: 
  Country: US (occurrence: US)
  Receive Date: 20121114
  Receipt Date: 20121114
  Transmission Date: 20130627
  Serious: Yes (Other)
  Sender: FDA-Public Use
  Company Number: CHPA2012US023253

PATIENT
  Age: 69 Year
  Sex: Female

DRUGS (1)
  1. VOLTAREN GEL [Suspect]
     Dosage: UNK, every 8 hours
     Route: 061

REACTIONS (2)
  - Ulcer [Unknown]
  - Inappropriate schedule of drug administration [Unknown]
